FAERS Safety Report 24261831 (Version 1)
Quarter: 2024Q3

REPORT INFORMATION
  Report Type: Spontaneous
  Country: DE (occurrence: DE)
  Receive Date: 20240829
  Receipt Date: 20240829
  Transmission Date: 20241016
  Serious: Yes (Other)
  Sender: QUAGEN PHARMACEUTICALS
  Company Number: DE-QUAGEN-2024QUALIT00250

PATIENT
  Age: 76 Year
  Sex: Female

DRUGS (3)
  1. TRIAMCINOLONE ACETONIDE [Suspect]
     Active Substance: TRIAMCINOLONE ACETONIDE
     Indication: Muscle spasticity
     Route: 037
     Dates: start: 201906
  2. TRIAMCINOLONE ACETONIDE [Suspect]
     Active Substance: TRIAMCINOLONE ACETONIDE
     Route: 037
     Dates: start: 20220421
  3. TRIAMCINOLONE ACETONIDE [Suspect]
     Active Substance: TRIAMCINOLONE ACETONIDE
     Dosage: 17 TH INJECTION
     Route: 037
     Dates: start: 20230719

REACTIONS (3)
  - CSF neutrophil count increased [Recovered/Resolved]
  - Pleocytosis [Recovered/Resolved]
  - Product use in unapproved indication [Unknown]
